FAERS Safety Report 6662531-3 (Version None)
Quarter: 2010Q1

REPORT INFORMATION
  Report Type: 
  Country: None (occurrence: None)
  Receive Date: 20100329
  Receipt Date: 20100311
  Transmission Date: 20100710
  Serious: Yes (Other)
  Sender: FDA-Public Use
  Company Number: THQ2010A00700

PATIENT
  Age: 74 Year
  Sex: Female

DRUGS (3)
  1. ACTOS [Suspect]
     Indication: DRUG USE FOR UNKNOWN INDICATION
     Dosage: 45 MG
     Dates: start: 20050101, end: 20090901
  2. LANTUS [Concomitant]
  3. NUMEROUS OTHER UNSPECIFIED MEDICATIONS (ALL OTHER THERAPEUTIC PRODUCTS [Concomitant]

REACTIONS (1)
  - MYOCARDIAL INFARCTION [None]
